FAERS Safety Report 16010386 (Version 1)
Quarter: 2019Q1

REPORT INFORMATION
  Report Type: Spontaneous
  Country: SE (occurrence: SE)
  Receive Date: 20190225
  Receipt Date: 20190225
  Transmission Date: 20190418
  Serious: Yes (Other)
  Sender: FDA-Public Use
  Company Number: SE-TEVA-2019-SE-1015958

PATIENT
  Sex: Male

DRUGS (1)
  1. ATORVASTATIN ACTAVIS [Suspect]
     Active Substance: ATORVASTATIN
     Route: 065
     Dates: end: 20181023

REACTIONS (2)
  - Rhabdomyolysis [Unknown]
  - Pulmonary embolism [Unknown]
